FAERS Safety Report 8076824-9 (Version None)
Quarter: 2012Q1

REPORT INFORMATION
  Report Type: 
  Country: None (occurrence: None)
  Receive Date: 20120127
  Receipt Date: 20120118
  Transmission Date: 20120608
  Serious: Yes (Hospitalization)
  Sender: FDA-Public Use
  Company Number: US-MERCK-1106USA03840

PATIENT
  Age: 41 Year
  Sex: Male

DRUGS (3)
  1. FOSAMAX [Suspect]
     Indication: OSTEOPOROSIS
     Route: 048
     Dates: start: 19970101, end: 20100101
  2. ALENDRONATE SODIUM [Suspect]
     Route: 048
     Dates: start: 20080301
  3. FOSAMAX [Suspect]
     Route: 048

REACTIONS (11)
  - HYPERTENSION [None]
  - HEADACHE [None]
  - TOOTH DISORDER [None]
  - HAEMATURIA [None]
  - FEMUR FRACTURE [None]
  - BENIGN PROSTATIC HYPERPLASIA [None]
  - DYSURIA [None]
  - ANXIETY [None]
  - SINUSITIS [None]
  - FALL [None]
  - DIZZINESS [None]
